FAERS Safety Report 13898543 (Version 2)
Quarter: 2017Q4

REPORT INFORMATION
  Report Type: Spontaneous
  Country: RU (occurrence: RU)
  Receive Date: 20170824
  Receipt Date: 20171006
  Transmission Date: 20180320
  Serious: Yes (Hospitalization)
  Sender: FDA-Public Use
  Company Number: RU-ASTRAZENECA-2017SE85983

PATIENT
  Age: 56 Year
  Sex: Female
  Weight: 75 kg

DRUGS (7)
  1. EGILOK [Concomitant]
     Active Substance: METOPROLOL TARTRATE
  2. BRILINTA [Suspect]
     Active Substance: TICAGRELOR
     Indication: MYOCARDIAL INFARCTION
     Route: 048
     Dates: start: 201704
  3. ACECARDOL [Concomitant]
     Active Substance: ASPIRIN
  4. PANTOPRAZOLE [Concomitant]
     Active Substance: PANTOPRAZOLE
  5. FOSICARD [Concomitant]
  6. STRESAM [Concomitant]
     Active Substance: ETIFOXINE
  7. ATORVASTATIN [Concomitant]
     Active Substance: ATORVASTATIN

REACTIONS (4)
  - Contusion [Not Recovered/Not Resolved]
  - Angina pectoris [Recovered/Resolved]
  - Off label use [Unknown]
  - Product use issue [Unknown]

NARRATIVE: CASE EVENT DATE: 20170812
